FAERS Safety Report 7712120-4 (Version None)
Quarter: 2011Q3

REPORT INFORMATION
  Report Type: 
  Country: None (occurrence: None)
  Receive Date: 20110826
  Receipt Date: 20110809
  Transmission Date: 20111222
  Serious: No
  Sender: FDA-Public Use
  Company Number: US-B.I. PHARMACEUTICALS,INC./RIDGEFIELD-2011-BP-19522BP

PATIENT
  Age: 40 Decade
  Sex: Female

DRUGS (3)
  1. JANUVIA [Concomitant]
  2. TRADJENTA [Suspect]
     Indication: TYPE 2 DIABETES MELLITUS
     Dosage: 5 MG
     Route: 048
     Dates: start: 20110601
  3. ONGLYZA [Concomitant]

REACTIONS (1)
  - OEDEMA PERIPHERAL [None]
